FAERS Safety Report 9435729 (Version 1)
Quarter: 2013Q3

REPORT INFORMATION
  Report Type: Spontaneous
  Country: US (occurrence: US)
  Receive Date: 20130730
  Receipt Date: 20130730
  Transmission Date: 20140515
  Serious: Yes (Hospitalization, Other)
  Sender: FDA-Public Use
  Company Number: US-ZYDUS-001842

PATIENT
  Age: 73 Year
  Sex: Female

DRUGS (3)
  1. METFORMIN (METFORMIN) [Suspect]
     Indication: DIABETES MELLITUS
  2. IBUPROFEN [Suspect]
     Indication: FRACTURE
  3. LISINOPRIL (LISINOPRIL) [Suspect]
     Indication: DIABETES MELLITUS

REACTIONS (3)
  - Renal failure acute [None]
  - Humerus fracture [None]
  - Dialysis [None]
